FAERS Safety Report 8778329 (Version 5)
Quarter: 2013Q1

REPORT INFORMATION
  Report Type: Report from Study
  Country: AU (occurrence: AU)
  Receive Date: 20120912
  Receipt Date: 20130109
  Transmission Date: 20140127
  Serious: Yes (Hospitalization)
  Sender: FDA-Public Use
  Company Number: AU-ROCHE-1075974

PATIENT
  Age: 73 Year
  Sex: Male
  Weight: 81.5 kg

DRUGS (28)
  1. VEMURAFENIB [Suspect]
     Indication: MALIGNANT MELANOMA
     Dosage: LAST DOSE PRIOR TO SAE:08/DEC/2012
     Route: 048
     Dates: start: 20111110
  2. VEMURAFENIB [Suspect]
     Dosage: LAST DOSE PRIOR TO SAE:26/JAN/2012
     Route: 048
     Dates: start: 20120105
  3. VEMURAFENIB [Suspect]
     Dosage: LAST DOSE PRIOR TO SAE:06/MAR/2012
     Route: 048
     Dates: start: 20120213
  4. VEMURAFENIB [Suspect]
     Dosage: LAST DOSE PRIOR TO SAE:30/APR/2012
     Route: 048
     Dates: start: 20120312
  5. VEMURAFENIB [Suspect]
     Dosage: LAST DOSE PRIOR TO THE SAE: 25/JUN/2012
     Route: 048
     Dates: start: 20120508, end: 20120626
  6. OXYCONTIN [Concomitant]
     Route: 065
     Dates: start: 201112
  7. OXYCONTIN [Concomitant]
     Route: 065
     Dates: start: 20111204
  8. OXYCONTIN [Concomitant]
     Route: 065
     Dates: start: 20120405
  9. DEXAMETHASONE [Concomitant]
     Route: 065
     Dates: start: 201205
  10. DEXAMETHASONE [Concomitant]
     Route: 065
     Dates: start: 20120405
  11. CHOLECALCIFEROL [Concomitant]
     Dosage: TOTAL DAIL DOSE: 2000/UNIT
     Route: 065
     Dates: start: 201205
  12. OMEPRAZOLE [Concomitant]
     Route: 065
     Dates: start: 20111123
  13. OMEPRAZOLE [Concomitant]
     Route: 065
     Dates: start: 20111123
  14. FLUCONAZOLE [Concomitant]
     Route: 065
     Dates: start: 20120207
  15. PRESSIN [Concomitant]
     Route: 065
     Dates: start: 1971, end: 20120430
  16. MICARDIS [Concomitant]
     Route: 065
     Dates: start: 20120508, end: 20120601
  17. ISOPTIN SR [Concomitant]
     Route: 065
     Dates: start: 1971, end: 20120430
  18. LACTULOSE [Concomitant]
     Dosage: DOSE REPOTED AS PM/MG
     Route: 065
     Dates: start: 20111110
  19. COLOXYL SENNA [Concomitant]
     Route: 065
     Dates: start: 20111110
  20. STEMETIL [Concomitant]
     Route: 065
     Dates: start: 20111208
  21. MOVICOL [Concomitant]
     Dosage: 2 SACHET
     Route: 065
     Dates: start: 20120625
  22. AUGMENTIN DUO FORTE [Concomitant]
     Route: 065
     Dates: start: 20120606
  23. CLEXANE [Concomitant]
     Route: 065
     Dates: start: 20120612
  24. PANADOL [Concomitant]
     Route: 065
     Dates: start: 20111123
  25. NYSTATIN [Concomitant]
     Route: 065
     Dates: start: 20111208, end: 20120612
  26. OXYNORM [Concomitant]
     Route: 065
     Dates: start: 20120405
  27. METOCLOPRAMIDE [Concomitant]
     Route: 065
     Dates: start: 20111117
  28. MICROLAX (AUSTRALIA) [Concomitant]
     Route: 065
     Dates: start: 20120612

REACTIONS (2)
  - Dehydration [Recovered/Resolved]
  - Abscess [Not Recovered/Not Resolved]
